FAERS Safety Report 5548814-9 (Version None)
Quarter: 2007Q4

REPORT INFORMATION
  Report Type: 
  Country: None (occurrence: None)
  Receive Date: 20071211
  Receipt Date: 20070403
  Transmission Date: 20080405
  Serious: No
  Sender: FDA-Public Use
  Company Number: US-AMGEN-KDL216008

PATIENT
  Sex: Female

DRUGS (3)
  1. ENBREL [Suspect]
     Indication: PSORIASIS
     Route: 058
     Dates: start: 20051101
  2. UNSPECIFIED TOPICAL PRODUCT [Suspect]
     Dates: start: 20070402
  3. TEMOVATE [Concomitant]
     Dates: start: 20070305, end: 20070402

REACTIONS (3)
  - COUGH [None]
  - NASOPHARYNGITIS [None]
  - SINUSITIS [None]
